FAERS Safety Report 7221833-2 (Version None)
Quarter: 2011Q1

REPORT INFORMATION
  Report Type: 
  Country: None (occurrence: None)
  Receive Date: 20110112
  Receipt Date: 20110106
  Transmission Date: 20110831
  Serious: Yes (Other)
  Sender: FDA-Public Use
  Company Number: A0901422A

PATIENT
  Age: 37 Year
  Sex: Female

DRUGS (9)
  1. MISOPROSTOL [Concomitant]
  2. PHENERGAN [Concomitant]
  3. IBUPROFEN [Concomitant]
  4. CONSTIPATION DRUG [Concomitant]
  5. CHLORDIAZEPOXIDE [Concomitant]
  6. DIAZEPAM [Concomitant]
  7. ELMIRON [Concomitant]
  8. ZANTAC [Suspect]
     Dosage: 150TAB TWICE PER DAY
     Route: 048
     Dates: start: 20030101
  9. DEMEROL [Concomitant]

REACTIONS (13)
  - ENDOMETRIOSIS [None]
  - GASTROOESOPHAGEAL REFLUX DISEASE [None]
  - RED BLOOD CELL COUNT DECREASED [None]
  - FATIGUE [None]
  - PANCREATIC NEOPLASM [None]
  - HYPERCHLORHYDRIA [None]
  - DYSPEPSIA [None]
  - SERUM FERRITIN INCREASED [None]
  - ANAEMIA [None]
  - IRON DEFICIENCY [None]
  - HAEMOGLOBIN INCREASED [None]
  - DRUG INEFFECTIVE [None]
  - SERUM FERRITIN DECREASED [None]
